FAERS Safety Report 20899402 (Version 5)
Quarter: 2022Q3

REPORT INFORMATION
  Report Type: Report from Study
  Country: US (occurrence: US)
  Receive Date: 20220601
  Receipt Date: 20220803
  Transmission Date: 20221027
  Serious: Yes (Other)
  Sender: FDA-Public Use
  Company Number: NVSC2022US125689

PATIENT
  Sex: Male

DRUGS (2)
  1. PROMACTA [Suspect]
     Active Substance: ELTROMBOPAG OLAMINE
     Indication: Product used for unknown indication
     Dosage: UNK
     Route: 048
     Dates: start: 20220428
  2. PROMACTA [Suspect]
     Active Substance: ELTROMBOPAG OLAMINE
     Dosage: UP 2 PILLS PER DAY
     Route: 065

REACTIONS (6)
  - Platelet count decreased [Unknown]
  - Sciatica [Unknown]
  - Product storage error [Unknown]
  - Arthralgia [Unknown]
  - Pain in extremity [Unknown]
  - Labelled drug-food interaction issue [Unknown]
